FAERS Safety Report 6112958-3 (Version None)
Quarter: 2009Q1

REPORT INFORMATION
  Report Type: 
  Country: None (occurrence: None)
  Receive Date: 20090312
  Receipt Date: 20090312
  Transmission Date: 20090719
  Serious: Yes (Other)
  Sender: FDA-Public Use
  Company Number: A0772713A

PATIENT
  Age: 82 Year
  Sex: Female

DRUGS (1)
  1. ALLI [Suspect]
     Route: 048
     Dates: start: 20081226, end: 20090210

REACTIONS (1)
  - HEPATIC ENZYME INCREASED [None]
